FAERS Safety Report 4742129-4 (Version None)
Quarter: 2005Q3

REPORT INFORMATION
  Report Type: 
  Country: None (occurrence: None)
  Receive Date: 20050808
  Receipt Date: 20050725
  Transmission Date: 20060218
  Serious: Yes (Other)
  Sender: FDA-Public Use
  Company Number: 2005107230

PATIENT
  Age: 68 Year
  Sex: Male
  Weight: 88 kg

DRUGS (4)
  1. CABERGOLINE [Suspect]
     Indication: PARKINSON'S DISEASE
     Dosage: 6 MG (EVERY DAY), ORAL
     Route: 048
     Dates: start: 20021001, end: 20050708
  2. COD-LIVER OIL            (COD-LIVER OIL) [Concomitant]
  3. GLUCOSAMINE          (GLUCOSAMNE) [Concomitant]
  4. AMANTADINE HCL [Concomitant]

REACTIONS (4)
  - AORTIC VALVE INCOMPETENCE [None]
  - FIBROSIS [None]
  - MITRAL VALVE DISEASE [None]
  - MITRAL VALVE INCOMPETENCE [None]
